FAERS Safety Report 19507401 (Version 1)
Quarter: 2021Q3

REPORT INFORMATION
  Report Type: Spontaneous
  Country: US (occurrence: US)
  Receive Date: 20210708
  Receipt Date: 20210708
  Transmission Date: 20211014
  Serious: Yes (Other)
  Sender: FDA-Public Use
  Company Number: US-ASTRAZENECA-2021A586547

PATIENT
  Sex: Male
  Weight: 55.8 kg

DRUGS (1)
  1. IMFINZI [Suspect]
     Active Substance: DURVALUMAB
     Indication: LUNG NEOPLASM MALIGNANT
     Route: 042

REACTIONS (9)
  - Myocardial fibrosis [Unknown]
  - Weight increased [Unknown]
  - Taste disorder [Unknown]
  - Pulmonary fibrosis [Unknown]
  - Constipation [Unknown]
  - Myocardial infarction [Unknown]
  - Haemorrhage [Unknown]
  - Gastrointestinal tract irritation [Unknown]
  - Functional gastrointestinal disorder [Unknown]
